FAERS Safety Report 5386537-X (Version None)
Quarter: 2007Q3

REPORT INFORMATION
  Report Type: 
  Country: None (occurrence: None)
  Receive Date: 20070713
  Receipt Date: 20070614
  Transmission Date: 20080115
  Serious: Yes (Hospitalization, Other)
  Sender: FDA-Public Use
  Company Number: FR-GENENTECH-239943

PATIENT
  Sex: Male
  Weight: 50 kg

DRUGS (1)
  1. XOLAIR [Suspect]
     Indication: ASTHMA
     Dosage: 300 MG, 1/MONTH
     Route: 058

REACTIONS (3)
  - ABDOMINAL PAIN [None]
  - BENIGN PANCREATIC NEOPLASM [None]
  - WEIGHT DECREASED [None]
